FAERS Safety Report 6619492-2 (Version None)
Quarter: 2010Q1

REPORT INFORMATION
  Report Type: 
  Country: None (occurrence: None)
  Receive Date: 20100304
  Receipt Date: 20100217
  Transmission Date: 20100710
  Serious: Yes (Hospitalization)
  Sender: FDA-Public Use
  Company Number: 2010000184

PATIENT

DRUGS (10)
  1. ERLOTINIB             (TABLET) [Suspect]
     Indication: PANCREATIC CARCINOMA
     Dosage: (100 MG,QD), ORAL
     Route: 048
     Dates: start: 20091021
  2. CAPECITABINE [Suspect]
     Indication: PANCREATIC CARCINOMA
  3. DILAUDID         (HYDROMOEPHONE HYDROCHLORIDE) [Concomitant]
  4. PANCREASE        (PANCRELIPASE) [Concomitant]
  5. COLACE    (DOUCUSATE SODIUM) [Concomitant]
  6. PROTONIX        (PANTOPRZZOLE) [Concomitant]
  7. LISINOPRIL [Concomitant]
  8. NIFEDIPINE [Concomitant]
  9. COMPAZINE     (PROCHLOE[ERAZINE EDISYLATE) [Concomitant]
  10. POTASSIUM [Concomitant]

REACTIONS (2)
  - HYPOTENSION [None]
  - SYNCOPE [None]
